FAERS Safety Report 12737049 (Version 4)
Quarter: 2017Q1

REPORT INFORMATION
  Report Type: Spontaneous
  Country: US (occurrence: US)
  Receive Date: 20160912
  Receipt Date: 20170303
  Transmission Date: 20170428
  Serious: Yes (Death, Hospitalization, Other)
  Sender: FDA-Public Use
  Company Number: US-JNJFOC-20160908216

PATIENT
  Age: 70 Year
  Sex: Male

DRUGS (1)
  1. XARELTO [Suspect]
     Active Substance: RIVAROXABAN
     Indication: PRODUCT USED FOR UNKNOWN INDICATION
     Route: 048
     Dates: start: 201301, end: 201401

REACTIONS (3)
  - Gastrointestinal haemorrhage [Unknown]
  - Haemorrhagic stroke [Fatal]
  - Epistaxis [Unknown]

NARRATIVE: CASE EVENT DATE: 20131221
